FAERS Safety Report 8765826 (Version 1)
Quarter: 2012Q4

REPORT INFORMATION
  Report Type: 
  Country: US (occurrence: US)
  Receive Date: 20120903
  Receipt Date: 20120903
  Transmission Date: 20130627
  Serious: Yes (Other)
  Sender: FDA-Public Use
  Company Number: US-AMGEN-USASP2012055072

PATIENT
  Age: 55 Year
  Sex: Male

DRUGS (4)
  1. ENBREL [Suspect]
     Indication: PRODUCT USED FOR UNKNOWN INDICATION
     Dosage: UNK
  2. FOSAMAX [Concomitant]
     Dosage: UNK
  3. PLAQUENIL                          /00072602/ [Concomitant]
     Dosage: UNK
  4. SYMBICORT [Concomitant]
     Dosage: UNK

REACTIONS (1)
  - Sepsis [Unknown]
